FAERS Safety Report 7618042-1 (Version None)
Quarter: 2011Q3

REPORT INFORMATION
  Report Type: 
  Country: None (occurrence: None)
  Receive Date: 20110718
  Receipt Date: 20110707
  Transmission Date: 20111222
  Serious: Yes (Other)
  Sender: FDA-Public Use
  Company Number: PHHY2011KW61221

PATIENT
  Age: 55 Year
  Sex: Female

DRUGS (3)
  1. CALCIUM CARBONATE [Concomitant]
  2. FEMARA [Suspect]
     Indication: BREAST CANCER
     Dosage: 2.5 MG, QD
     Route: 048
     Dates: start: 20110501, end: 20110601
  3. VITAMIN D [Concomitant]

REACTIONS (6)
  - RASH ERYTHEMATOUS [None]
  - BLISTER [None]
  - SKIN EXFOLIATION [None]
  - RECALL PHENOMENON [None]
  - DERMATITIS ALLERGIC [None]
  - SKIN LESION [None]
